FAERS Safety Report 14611395 (Version 1)
Quarter: 2018Q1

REPORT INFORMATION
  Report Type: Spontaneous
  Country: ES (occurrence: ES)
  Receive Date: 20180308
  Receipt Date: 20180308
  Transmission Date: 20180509
  Serious: Yes (Hospitalization, Other)
  Sender: FDA-Public Use
  Company Number: ES-MACLEODS PHARMACEUTICALS US LTD-MAC2017006318

PATIENT

DRUGS (8)
  1. HIBOR [Concomitant]
     Active Substance: BEMIPARIN SODIUM
     Indication: THROMBOSIS PROPHYLAXIS
     Dosage: 1 UNK, QD 3500 IU ANTI-XA/0.2 ML SOLUTION FOR INJECTION IN PRE-FILLED SYRINGE; IN THE EVENING
     Route: 058
     Dates: start: 2015, end: 2015
  2. HIBOR [Concomitant]
     Active Substance: BEMIPARIN SODIUM
     Dosage: 7500 IU, UNK
     Route: 058
  3. ESCITALOPRAM OXALATE 5MG TABLET PRESCRIPTION F 53 = [AUROBINDO PHARMA LIMITED [Suspect]
     Active Substance: ESCITALOPRAM OXALATE
     Indication: ANXIETY
     Dosage: 5 MG, QD AT BREAKFAST, FOR SEVERAL YEARS
     Route: 048
     Dates: end: 2015
  4. EMCONCOR 2.5 MG [Concomitant]
     Indication: HYPERTENSION
     Dosage: 1.25 MG, BID AT BREAKFAST AND DINNER, EVERY 12 HOURS
     Route: 048
  5. HIBOR [Concomitant]
     Active Substance: BEMIPARIN SODIUM
     Dosage: 2500 IU, UNK
     Route: 058
  6. ESCITALOPRAM OXALATE 5MG TABLET PRESCRIPTION F 53 = [AUROBINDO PHARMA LIMITED [Interacting]
     Active Substance: ESCITALOPRAM OXALATE
     Indication: PRODUCT USED FOR UNKNOWN INDICATION
     Dosage: UNK
     Route: 065
  7. SIMVASTATIN CINFA 20 MG [Concomitant]
     Indication: HYPERCHOLESTEROLAEMIA
     Dosage: 20 MG, QD AT DINNER
     Route: 048
  8. HIBOR [Concomitant]
     Active Substance: BEMIPARIN SODIUM
     Dosage: 10000 IU, UNK
     Route: 058

REACTIONS (9)
  - Drug interaction [Unknown]
  - Oedema [Unknown]
  - Haemorrhage [Recovered/Resolved]
  - Hypoproteinaemia [Unknown]
  - Pain in extremity [Unknown]
  - Haemodynamic instability [Unknown]
  - Pulmonary congestion [Unknown]
  - Deep vein thrombosis [Unknown]
  - Food interaction [Unknown]

NARRATIVE: CASE EVENT DATE: 2015
